FAERS Safety Report 19686811 (Version 1)
Quarter: 2021Q3

REPORT INFORMATION
  Report Type: Spontaneous
  Country: US (occurrence: US)
  Receive Date: 20210811
  Receipt Date: 20210811
  Transmission Date: 20211014
  Serious: No
  Sender: FDA-Public Use
  Company Number: US-MEDEXUS PHARMA, INC.-2020MED00318

PATIENT
  Sex: Female

DRUGS (2)
  1. RASUVO [Suspect]
     Active Substance: METHOTREXATE SODIUM
     Dosage: 20 MG, SELF INJECTED IN HER STOMACH
     Dates: start: 2020
  2. RASUVO [Suspect]
     Active Substance: METHOTREXATE SODIUM
     Dosage: 20 MG, SELF INJECTED AROUND THE ABDOMEN AREA
     Dates: start: 20200818, end: 2020

REACTIONS (4)
  - Vomiting [Unknown]
  - Gastroenteritis viral [Unknown]
  - Device delivery system issue [Unknown]
  - Injection site reaction [Unknown]

NARRATIVE: CASE EVENT DATE: 2020
